FAERS Safety Report 6290133-X (Version None)
Quarter: 2009Q3

REPORT INFORMATION
  Report Type: 
  Country: None (occurrence: None)
  Receive Date: 20090730
  Receipt Date: 20081208
  Transmission Date: 20100115
  Serious: Yes (Hospitalization)
  Sender: FDA-Public Use
  Company Number: US-BRISTOL-MYERS SQUIBB COMPANY-14435820

PATIENT
  Age: 60 Year
  Sex: Female
  Weight: 47 kg

DRUGS (8)
  1. COUMADIN [Suspect]
     Indication: CEREBROVASCULAR ACCIDENT
     Dosage: IN 2003 DOSAGE DECREASED TO 9MG, AGAIN DECREASED TO 8MG,CURRENT DOSAGE IS 6MG.
     Dates: start: 19980506
  2. COUMADIN [Suspect]
     Indication: CARDIAC DISORDER
     Dosage: IN 2003 DOSAGE DECREASED TO 9MG, AGAIN DECREASED TO 8MG,CURRENT DOSAGE IS 6MG.
     Dates: start: 19980506
  3. SEROQUEL [Concomitant]
  4. VALIUM [Concomitant]
  5. ALBUTEROL [Concomitant]
  6. NITROGLYCERIN [Concomitant]
  7. ATROVENT [Concomitant]
  8. LIDODERM [Concomitant]

REACTIONS (2)
  - OVERDOSE [None]
  - TOOTH FRACTURE [None]
